FAERS Safety Report 8451055-9 (Version None)
Quarter: 2012Q2

REPORT INFORMATION
  Report Type: 
  Country: None (occurrence: None)
  Receive Date: 20120620
  Receipt Date: 20120611
  Transmission Date: 20120825
  Serious: Yes (Other)
  Sender: FDA-Public Use
  Company Number: BR-ASTRAZENECA-2012SE39556

PATIENT
  Age: 70 Year
  Sex: Female
  Weight: 70 kg

DRUGS (7)
  1. NEXIUM [Suspect]
     Route: 048
     Dates: start: 20120601
  2. MOTILIUM [Concomitant]
     Indication: GASTROOESOPHAGEAL REFLUX DISEASE
     Route: 048
     Dates: start: 20080101
  3. DIOVAN HCT [Concomitant]
     Route: 048
  4. SELIMALON [Concomitant]
     Route: 048
     Dates: start: 20080101
  5. MANIPLULATED MEDICATION [Concomitant]
     Indication: BLOOD CHOLESTEROL INCREASED
     Route: 048
  6. NEXIUM [Suspect]
     Indication: GASTROOESOPHAGEAL REFLUX DISEASE
     Route: 048
     Dates: start: 20090101, end: 20120601
  7. EUTHYROX [Concomitant]
     Route: 048

REACTIONS (3)
  - VOMITING [None]
  - DIARRHOEA [None]
  - TENDON DISORDER [None]
